FAERS Safety Report 8842300 (Version 2)
Quarter: 2013Q2

REPORT INFORMATION
  Report Type: Spontaneous
  Country: US (occurrence: US)
  Receive Date: 20121016
  Receipt Date: 20130426
  Transmission Date: 20140414
  Serious: Yes (Death, Hospitalization, Other)
  Sender: FDA-Public Use
  Company Number: US-PFIZER INC-2012253327

PATIENT
  Age: 51 Year
  Sex: Female

DRUGS (16)
  1. DILANTIN-125 [Suspect]
     Indication: CONVULSION
     Dosage: 1 G, UNK
     Dates: start: 20111123, end: 20111124
  2. ZOSYN [Concomitant]
     Dosage: 3.375 G, 2X/DAY
     Dates: start: 20111115
  3. ZOCOR [Concomitant]
     Dosage: 40 MG, 1X/DAY (AT BEDTIME)
     Route: 048
     Dates: start: 20111115
  4. KEPPRA [Concomitant]
     Dosage: 1000 MG, 2X/DAY
     Dates: start: 20111115
  5. MERREM [Concomitant]
     Dosage: 1 G, 2X/DAY
     Dates: start: 20111115
  6. CATAPRES [Concomitant]
     Dosage: ONE PATCH TRANSDERMAL EVERY WEEK
     Route: 062
     Dates: start: 20111115
  7. SODIUM BICARBONATE [Concomitant]
     Dosage: 650 MG, 2X/DAY
     Route: 048
     Dates: start: 20111115
  8. PRILOSEC [Concomitant]
     Dosage: 40 MG, 1X/DAY
     Route: 048
     Dates: start: 20111115
  9. COLACE [Concomitant]
     Dosage: 100 MG, 3X/DAY
     Route: 048
     Dates: start: 20111115
  10. CREON [Concomitant]
     Dosage: UNK
     Route: 048
     Dates: start: 20111115
  11. CATAPRES [Concomitant]
     Dosage: 0.3 MG, 3X/DAY
     Route: 048
     Dates: start: 20111115
  12. ASPIRIN [Concomitant]
     Dosage: 81 MG, 1X/DAY
     Route: 048
     Dates: start: 20111115
  13. BACLOFEN [Concomitant]
     Dosage: 5 MG, 2X/DAY
     Route: 048
     Dates: start: 20111115
  14. COGENTIN [Concomitant]
     Dosage: 0.5 MG, 1X/DAY (AT BEDTIME)
     Route: 048
     Dates: start: 20111115
  15. NOVOLIN [Concomitant]
     Dosage: 2-12 UNIT, UNK
     Route: 058
     Dates: start: 20111116
  16. BACTROBAN [Concomitant]
     Dosage: 2 %, 2X/DAY
     Route: 061
     Dates: start: 20111117

REACTIONS (2)
  - Toxic epidermal necrolysis [Fatal]
  - Stevens-Johnson syndrome [Unknown]
